FAERS Safety Report 9094292 (Version 2)
Quarter: 2013Q3

REPORT INFORMATION
  Report Type: Spontaneous
  Country: JP (occurrence: JP)
  Receive Date: 20130218
  Receipt Date: 20130729
  Transmission Date: 20140515
  Serious: Yes (Death)
  Sender: FDA-Public Use
  Company Number: JP-ROCHE-1191759

PATIENT
  Age: 75 Year
  Sex: Female
  Weight: 35 kg

DRUGS (6)
  1. XELODA [Suspect]
     Indication: METASTATIC GASTRIC CANCER
     Route: 048
     Dates: start: 20130204, end: 20130209
  2. HERCEPTIN [Suspect]
     Indication: METASTATIC GASTRIC CANCER
     Route: 041
     Dates: start: 20130204, end: 20130204
  3. CISPLATIN [Concomitant]
     Indication: METASTATIC GASTRIC CANCER
     Dosage: DOSAGE IS UNCERTAIN.
     Route: 041
     Dates: start: 20130204
  4. MERCAZOLE [Concomitant]
     Indication: HYPERTHYROIDISM
     Route: 048
  5. ALENDRONATE SODIUM [Concomitant]
     Indication: HYPERTHYROIDISM
     Route: 048
  6. TRAMAL [Concomitant]
     Indication: METASTATIC GASTRIC CANCER
     Route: 048
     Dates: start: 20130208, end: 20130209

REACTIONS (2)
  - Gastrointestinal perforation [Fatal]
  - Shock [Fatal]
